FAERS Safety Report 6384079-6 (Version None)
Quarter: 2009Q3

REPORT INFORMATION
  Report Type: 
  Country: None (occurrence: None)
  Receive Date: 20090929
  Receipt Date: 20090914
  Transmission Date: 20100115
  Serious: Yes (Life-Threatening, Hospitalization, Other)
  Sender: FDA-Public Use
  Company Number: PAR_03186_2009

PATIENT
  Age: 41 Year
  Sex: Female
  Weight: 68 kg

DRUGS (3)
  1. IBUPROFEN [Suspect]
     Indication: BACK PAIN
     Dosage: (1-2 FILM-COATED TABLETS A DAY, 2-3 TIMES A WEEK ORAL)
     Route: 048
     Dates: start: 19940101, end: 20090504
  2. NOVALGIN /06276704/ (NOVALGIN - METAMIZOLE SODIUM) (NOT SPECIFIED) [Suspect]
     Indication: PAIN
     Dosage: (30 GTT QID ORAL)
     Route: 048
     Dates: start: 20030101, end: 20090519
  3. NOVALGIN /06276704/ (NOVALGIN - METAMIZOLE SODIUM) (NOT SPECIFIED) [Suspect]
     Indication: PAIN
     Dosage: (1000 MG 1X INTRAVENOUS (NOT OTHERWISE SPECIFIED))
     Route: 042
     Dates: start: 20090507, end: 20090507

REACTIONS (18)
  - ALCOHOL WITHDRAWAL SYNDROME [None]
  - BLOOD CREATININE INCREASED [None]
  - BLOOD UREA INCREASED [None]
  - DIALYSIS [None]
  - DYSPHONIA [None]
  - ESCHERICHIA SEPSIS [None]
  - HAEMOGLOBIN DECREASED [None]
  - HAEMOLYSIS [None]
  - HEARING IMPAIRED [None]
  - HEPATIC STEATOSIS [None]
  - HYPERTENSION [None]
  - MIGRAINE [None]
  - OESOPHAGEAL CANDIDIASIS [None]
  - PARAESTHESIA [None]
  - PUNCTURE SITE HAEMORRHAGE [None]
  - RENAL FAILURE ACUTE [None]
  - THROMBOTIC MICROANGIOPATHY [None]
  - THROMBOTIC THROMBOCYTOPENIC PURPURA [None]
